FAERS Safety Report 16686824 (Version 1)
Quarter: 2019Q3

REPORT INFORMATION
  Report Type: Spontaneous
  Country: ES (occurrence: ES)
  Receive Date: 20190809
  Receipt Date: 20190809
  Transmission Date: 20191004
  Serious: Yes (Hospitalization)
  Sender: FDA-Public Use
  Company Number: ES-BAYER-2019-130929

PATIENT
  Age: 94 Year
  Sex: Female

DRUGS (5)
  1. ENALAPRIL MALEATO [Interacting]
     Active Substance: ENALAPRIL MALEATE
     Indication: HYPERTENSION
     Route: 048
     Dates: start: 20190523, end: 20190527
  2. LEVOFLOXACINO [LEVOFLOXACIN] [Interacting]
     Active Substance: LEVOFLOXACIN
     Indication: PNEUMONIA
     Dosage: 500 MG, BID
     Route: 042
     Dates: start: 20190523, end: 20190529
  3. FUROSEMIDA [FUROSEMIDE] [Concomitant]
     Indication: HYPERTENSION
     Dosage: 40 MG, BID
     Route: 048
     Dates: start: 20190528, end: 20190603
  4. ALEVE [Suspect]
     Active Substance: NAPROXEN SODIUM
     Indication: OSTEITIS
     Dosage: 50 MG, QD
     Route: 048
     Dates: start: 20190525, end: 20190527
  5. SULFAMETOXAZOL + TRIMETOPRIMA [Interacting]
     Active Substance: SULFAMETHOXAZOLE\TRIMETHOPRIM
     Indication: PNEUMONIA
     Dosage: 160 MG, QD
     Route: 048
     Dates: start: 20190529, end: 20190531

REACTIONS (1)
  - Acute kidney injury [Recovered/Resolved]

NARRATIVE: CASE EVENT DATE: 20190531
